FAERS Safety Report 8423714-5 (Version None)
Quarter: 2012Q2

REPORT INFORMATION
  Report Type: 
  Country: None (occurrence: None)
  Receive Date: 20120608
  Receipt Date: 20111017
  Transmission Date: 20120825
  Serious: No
  Sender: FDA-Public Use
  Company Number: US-ASTRAZENECA-2011SE49357

PATIENT
  Age: 68 Year
  Sex: Female

DRUGS (3)
  1. ACCOLATE [Concomitant]
  2. ATACAND [Suspect]
     Route: 048
  3. LISINOPRIL AND HYDROCHLOROTHIAZIDE [Suspect]
     Route: 048

REACTIONS (2)
  - WRONG DRUG ADMINISTERED [None]
  - NERVOUSNESS [None]
